FAERS Safety Report 8920843 (Version 2)
Quarter: 2014Q1

REPORT INFORMATION
  Report Type: Spontaneous
  Country: US (occurrence: US)
  Receive Date: 20121122
  Receipt Date: 20140303
  Transmission Date: 20141002
  Serious: No
  Sender: FDA-Public Use
  Company Number: US-PFIZER INC-2012288441

PATIENT
  Age: 74 Year
  Sex: Female
  Weight: 66 kg

DRUGS (3)
  1. PREMARIN [Suspect]
     Indication: VULVOVAGINAL DRYNESS
     Dosage: 0.5 G, 2X/WEEK
     Route: 067
  2. PREMARIN [Suspect]
     Dosage: 0.5 G, WEEKLY
     Route: 067
     Dates: end: 20121108
  3. EQUATE MAXIMUM STRENGTH ANTACID [Concomitant]
     Indication: DYSPEPSIA
     Dosage: ONE TABLESPOON, UNK

REACTIONS (1)
  - Alopecia [Not Recovered/Not Resolved]
